FAERS Safety Report 9277845 (Version 3)
Quarter: 2013Q3

REPORT INFORMATION
  Report Type: Spontaneous
  Country: GB (occurrence: GB)
  Receive Date: 20130508
  Receipt Date: 20130718
  Transmission Date: 20140515
  Serious: Yes (Death, Life-Threatening, Other)
  Sender: FDA-Public Use
  Company Number: PHFR2013GB002636

PATIENT
  Age: 79 Year
  Sex: Male

DRUGS (6)
  1. CLOZARIL [Suspect]
     Indication: SCHIZOPHRENIA
     Route: 048
     Dates: start: 20010701
  2. CLOZARIL [Suspect]
     Dosage: 350 MG, DAILY
     Route: 048
     Dates: end: 20130323
  3. FUROSEMIDE [Concomitant]
     Indication: OEDEMA
     Dosage: 40 MG, DAILY
     Route: 048
  4. FUROSEMIDE [Concomitant]
     Indication: CARDIAC FAILURE
  5. ORAMORPH [Concomitant]
     Indication: PAIN
     Dosage: 5 MG, DAILY
     Route: 048
     Dates: start: 20130224
  6. FOLIC ACID [Concomitant]
     Indication: FOLATE DEFICIENCY
     Dosage: 5 MG, DAILY
     Route: 048
     Dates: start: 20120424

REACTIONS (4)
  - Lung neoplasm malignant [Fatal]
  - Chest discomfort [Unknown]
  - Cardiac failure [Not Recovered/Not Resolved]
  - Neutrophil count increased [Unknown]
